FAERS Safety Report 5886720-0 (Version None)
Quarter: 2008Q3

REPORT INFORMATION
  Report Type: 
  Country: None (occurrence: None)
  Receive Date: 20080917
  Receipt Date: 20080912
  Transmission Date: 20090109
  Serious: Yes (Death, Life-Threatening, Hospitalization)
  Sender: FDA-Public Use
  Company Number: PHHO2008DE09058

PATIENT
  Sex: Male
  Weight: 76.3 kg

DRUGS (8)
  1. MYCOPHENOLATE MOFETIL [Suspect]
     Indication: HEART TRANSPLANT
     Dosage: 1000 MG
     Route: 042
     Dates: start: 20080403
  2. MYCOPHENOLATE MOFETIL [Suspect]
     Dosage: UNK
     Route: 048
     Dates: end: 20080501
  3. MYCOPHENOLATE MOFETIL [Suspect]
     Dosage: UNK
     Dates: start: 20080518, end: 20080703
  4. MYCOPHENOLATE MOFETIL [Suspect]
     Dosage: UNK
     Dates: start: 20080706, end: 20080828
  5. CYCLOSPORINE [Suspect]
     Indication: HEART TRANSPLANT
     Dosage: 100 MG, BID
     Route: 042
     Dates: start: 20080402
  6. CYCLOSPORINE [Suspect]
     Dosage: 80 MG, BID
     Route: 042
  7. PREDNISOLONE [Suspect]
     Indication: HEART TRANSPLANT
     Dosage: 6.25 MG, BID
     Route: 048
     Dates: start: 20080405
  8. PREDNISOLONE [Suspect]
     Dosage: 7.5 MG, BID
     Route: 048

REACTIONS (16)
  - BILE DUCT STENT INSERTION [None]
  - BILIARY DRAINAGE [None]
  - BLOOD BILIRUBIN INCREASED [None]
  - BRONCHITIS BACTERIAL [None]
  - CHOLESTASIS [None]
  - CYTOMEGALOVIRUS INFECTION [None]
  - DUODENAL SPHINCTEROTOMY [None]
  - ENDOTRACHEAL INTUBATION [None]
  - ENTEROBACTER INFECTION [None]
  - HEPATIC FAILURE [None]
  - MULTI-ORGAN FAILURE [None]
  - RESPIRATORY FAILURE [None]
  - RESPIRATORY TRACT INFECTION BACTERIAL [None]
  - SEPSIS [None]
  - STAPHYLOCOCCAL INFECTION [None]
  - WOUND INFECTION STAPHYLOCOCCAL [None]
